FAERS Safety Report 10058400 (Version 2)
Quarter: 2014Q2

REPORT INFORMATION
  Report Type: Spontaneous
  Country: FR (occurrence: FR)
  Receive Date: 20140404
  Receipt Date: 20140404
  Transmission Date: 20141212
  Serious: Yes (Death)
  Sender: FDA-Public Use
  Company Number: FR-SA-2014SA030601

PATIENT
  Age: 86 Year
  Sex: Male
  Weight: 30 kg

DRUGS (1)
  1. LASILIX [Suspect]
     Indication: OEDEMA DUE TO RENAL DISEASE
     Route: 048
     Dates: start: 20140206, end: 20140207

REACTIONS (4)
  - Renal failure acute [Fatal]
  - Coma uraemic [Fatal]
  - Staring [Unknown]
  - Vomiting [Unknown]
